FAERS Safety Report 4412128-0 (Version None)
Quarter: 2004Q3

REPORT INFORMATION
  Report Type: 
  Country: None (occurrence: None)
  Receive Date: 20040730
  Receipt Date: 20040714
  Transmission Date: 20050211
  Serious: Yes (Hospitalization)
  Sender: FDA-Public Use
  Company Number: LV-GLAXOSMITHKLINE-B0340902A

PATIENT
  Age: 30 Year
  Sex: Female

DRUGS (4)
  1. COMBIVIR [Suspect]
     Indication: HIV INFECTION
     Route: 048
     Dates: start: 20040317
  2. INDINAVIR [Suspect]
     Indication: HIV INFECTION
     Dosage: 400MG TWICE PER DAY
     Dates: start: 20040317
  3. RITONAVIR [Suspect]
     Indication: HIV INFECTION
     Dosage: 100MG TWICE PER DAY
     Dates: start: 20040317
  4. FLUCONAZOLE [Suspect]
     Indication: HIV INFECTION
     Dates: start: 20040317

REACTIONS (3)
  - HAEMORRHAGE [None]
  - OEDEMA PERIPHERAL [None]
  - PURPURA [None]
